FAERS Safety Report 6536707-X (Version None)
Quarter: 2010Q1

REPORT INFORMATION
  Report Type: 
  Country: None (occurrence: None)
  Receive Date: 20100105
  Receipt Date: 20091221
  Transmission Date: 20100710
  Serious: Yes (Other)
  Sender: FDA-Public Use
  Company Number: 2009312657

PATIENT
  Age: 38 Year
  Sex: Female

DRUGS (3)
  1. FRAGMIN [Suspect]
     Indication: PROPHYLAXIS OF ABORTION
     Dosage: 5000 IU, 1X/DAY, SUBCUTANEOUS
     Route: 058
     Dates: start: 20090701, end: 20090801
  2. ASPIRIN [Concomitant]
  3. ENOXAPARIN SODIUM [Concomitant]

REACTIONS (5)
  - ABORTION SPONTANEOUS [None]
  - HAEMATOMA [None]
  - INJECTION SITE HAEMORRHAGE [None]
  - INJECTION SITE PAIN [None]
  - NEEDLE ISSUE [None]
